FAERS Safety Report 15535418 (Version 5)
Quarter: 2020Q3

REPORT INFORMATION
  Report Type: Spontaneous
  Country: JP (occurrence: JP)
  Receive Date: 20181022
  Receipt Date: 20200703
  Transmission Date: 20201102
  Serious: Yes (Life-Threatening, Other)
  Sender: FDA-Public Use
  Company Number: JP-BRISTOL-MYERS SQUIBB COMPANY-BMS-2018-097483

PATIENT
  Age: 54 Year
  Sex: Female
  Weight: 49 kg

DRUGS (9)
  1. LOXONIN [Concomitant]
     Active Substance: LOXOPROFEN SODIUM
     Indication: PYREXIA
     Dosage: UNK
     Route: 048
     Dates: start: 20180804
  2. RED CELLS CONCENTRATES?LEUKOCYTES REDUCED [Concomitant]
     Active Substance: HUMAN RED BLOOD CELL
     Dosage: 280 MILLILITER
     Dates: start: 20181220, end: 20181220
  3. OPDIVO [Suspect]
     Active Substance: NIVOLUMAB
     Dosage: 240 MILLIGRAM, UNK
     Route: 041
     Dates: start: 20181105, end: 20190131
  4. LOXOPROFEN [Concomitant]
     Active Substance: LOXOPROFEN
     Indication: PAIN
     Dosage: UNK
     Route: 048
     Dates: start: 2013
  5. OPDIVO [Suspect]
     Active Substance: NIVOLUMAB
     Indication: PLEURAL MESOTHELIOMA MALIGNANT
     Dosage: 240 MG, UNK
     Route: 041
     Dates: start: 20180927, end: 20181011
  6. RED CELLS CONCENTRATES?LEUKOCYTES REDUCED [Concomitant]
     Active Substance: HUMAN RED BLOOD CELL
     Dosage: 280 MILLILITER
     Route: 042
     Dates: start: 20190207, end: 20190207
  7. PANVITAN [ASCORBIC ACID;ERGOCALCIFEROL;NICOTINAMIDE;PANTHENOL;PYRIDOXI [Concomitant]
     Indication: HYPOVITAMINOSIS
     Dosage: UNK
     Route: 048
     Dates: start: 2013
  8. BIO?THREE [Concomitant]
     Active Substance: HERBALS
     Indication: DYSBIOSIS
     Dosage: UNK
     Route: 048
     Dates: start: 2013
  9. RED CELLS CONCENTRATES?LEUKOCYTES REDUCED [Concomitant]
     Active Substance: HUMAN RED BLOOD CELL
     Indication: PRODUCT USED FOR UNKNOWN INDICATION
     Dosage: 280 MILLILITER
     Route: 042
     Dates: start: 20181025, end: 20181025

REACTIONS (7)
  - Dyspnoea [Recovered/Resolved]
  - Infusion related reaction [Recovered/Resolved]
  - Blood pressure decreased [Recovered/Resolved]
  - Oxygen saturation decreased [Recovered/Resolved]
  - Tachycardia [Recovered/Resolved]
  - Intentional product use issue [Unknown]
  - Diarrhoea [Recovered/Resolved]

NARRATIVE: CASE EVENT DATE: 20181011
